FAERS Safety Report 11157926 (Version 1)
Quarter: 2015Q2

REPORT INFORMATION
  Report Type: Spontaneous
  Country: GB (occurrence: None)
  Receive Date: 20150601
  Receipt Date: 20150601
  Transmission Date: 20150821
  Serious: Yes (Death, Hospitalization)
  Sender: FDA-Public Use
  Company Number: FK201502461

PATIENT
  Age: 71 Year
  Sex: Female

DRUGS (6)
  1. ETANERCEPT (ETANERCEPT) [Suspect]
     Active Substance: ETANERCEPT
     Indication: RHEUMATOID ARTHRITIS
     Dosage: 1 IN 1 WK
     Route: 058
     Dates: start: 20090926
  2. SALBUTAMOL (SALBUTAMOL) [Concomitant]
     Active Substance: ALBUTEROL
  3. METHOTREXATE [Suspect]
     Active Substance: METHOTREXATE
     Indication: RHEUMATOID ARTHRITIS
     Dosage: 1 IN 1 WK
     Route: 048
     Dates: start: 20000223, end: 20150311
  4. FOLIC ACID (FOLIC ACID) [Concomitant]
     Active Substance: FOLIC ACID
  5. SERETIDE [Concomitant]
     Active Substance: FLUTICASONE FUROATE\SALMETEROL XINAFOATE
  6. SPIRIVA (TIOTROPIUM SPIRIVA) [Concomitant]

REACTIONS (2)
  - Lung neoplasm malignant [None]
  - Metastases to bone [None]

NARRATIVE: CASE EVENT DATE: 20150310
